FAERS Safety Report 7234014-3 (Version None)
Quarter: 2011Q1

REPORT INFORMATION
  Report Type: 
  Country: None (occurrence: None)
  Receive Date: 20110113
  Receipt Date: 20110113
  Transmission Date: 20110831
  Serious: Yes (Hospitalization)
  Sender: FDA-Public Use
  Company Number: None

PATIENT
  Age: 85 Year
  Sex: Male
  Weight: 70 kg

DRUGS (1)
  1. SULFAMETHOXAZOLE AND TRIMETHOPRIM [Suspect]
     Indication: URINARY TRACT INFECTION
     Dosage: 1 TAB BID PO
     Route: 048
     Dates: start: 20100612, end: 20100616

REACTIONS (5)
  - MENTAL STATUS CHANGES [None]
  - HYPOPHAGIA [None]
  - RENAL FAILURE ACUTE [None]
  - CONFUSIONAL STATE [None]
  - FATIGUE [None]
